FAERS Safety Report 10308594 (Version 1)
Quarter: 2014Q3

REPORT INFORMATION
  Report Type: Spontaneous
  Country: FR (occurrence: FR)
  Receive Date: 20140716
  Receipt Date: 20140716
  Transmission Date: 20150326
  Serious: Yes (Hospitalization)
  Sender: FDA-Public Use
  Company Number: FR-TEVA-493891ISR

PATIENT
  Age: 90 Year
  Sex: Female

DRUGS (8)
  1. LOXEN [Concomitant]
     Active Substance: NICARDIPINE HYDROCHLORIDE
  2. LAMALINE 1G [Concomitant]
  3. SERTRALINE [Suspect]
     Active Substance: SERTRALINE HYDROCHLORIDE
     Dosage: 25 MILLIGRAM DAILY;
     Route: 048
     Dates: end: 20131017
  4. OXYBUTYNINE 5MG [Concomitant]
  5. CANDESARTAN 16MG [Concomitant]
  6. SERTRALINE [Suspect]
     Active Substance: SERTRALINE HYDROCHLORIDE
     Dosage: 4 TO 6 DF DAILY
     Route: 048
     Dates: start: 20131018, end: 20131024
  7. LORAZEPAM 2.5MG [Concomitant]
  8. LEVOTHYROX 50 MICROGRAMS [Concomitant]

REACTIONS (6)
  - Incorrect dose administered [Recovered/Resolved]
  - Overdose [Recovered/Resolved]
  - Trance [Recovered/Resolved]
  - Confusional state [Recovered/Resolved]
  - Anxiety [None]
  - Drug withdrawal syndrome [None]

NARRATIVE: CASE EVENT DATE: 201310
